FAERS Safety Report 8460408-4 (Version None)
Quarter: 2012Q2

REPORT INFORMATION
  Report Type: 
  Country: None (occurrence: None)
  Receive Date: 20120323
  Receipt Date: 20111111
  Transmission Date: 20120825
  Serious: Yes (Hospitalization)
  Sender: FDA-Public Use
  Company Number: 163-21880-11091603

PATIENT
  Age: 85 Year
  Sex: Female
  Weight: 88.4514 kg

DRUGS (8)
  1. REVLIMID [Suspect]
     Indication: MULTIPLE MYELOMA
     Dosage: 10 MG, 1 IN 1 D, PO
     Route: 048
     Dates: start: 20110419
  2. ASPIRIN [Concomitant]
  3. METOPROLOL TARTRATE [Concomitant]
  4. CALCIUM CARBONATE [Concomitant]
  5. MULTIVITAMIN [Concomitant]
  6. OMEPRAZOLE [Concomitant]
  7. COUMADIN [Concomitant]
  8. FE SOY (IRON FORMULA) [Concomitant]

REACTIONS (2)
  - OEDEMA [None]
  - PULMONARY OEDEMA [None]
